FAERS Safety Report 4731600-7 (Version None)
Quarter: 2005Q3

REPORT INFORMATION
  Report Type: 
  Country: None (occurrence: None)
  Receive Date: 20050802
  Receipt Date: 20050722
  Transmission Date: 20060218
  Serious: Yes (Hospitalization)
  Sender: FDA-Public Use
  Company Number: DE-ROCHE-411780

PATIENT
  Age: 53 Year
  Sex: Male
  Weight: 131.4 kg

DRUGS (1)
  1. XENICAL [Suspect]
     Indication: OBESITY
     Route: 048

REACTIONS (1)
  - NERVOUS SYSTEM DISORDER [None]
